FAERS Safety Report 6517357-8 (Version None)
Quarter: 2009Q4

REPORT INFORMATION
  Report Type: 
  Country: None (occurrence: None)
  Receive Date: 20091218
  Receipt Date: 20091208
  Transmission Date: 20100525
  Serious: Yes (Hospitalization)
  Sender: FDA-Public Use
  Company Number: FABR-1001100

PATIENT
  Age: 23 Year
  Sex: Male

DRUGS (1)
  1. FABRAZYME [Suspect]
     Indication: FABRY'S DISEASE
     Dosage: INTRAVENOUS
     Route: 042

REACTIONS (3)
  - BLOOD CREATININE INCREASED [None]
  - H1N1 INFLUENZA [None]
  - RENAL DISORDER [None]
